FAERS Safety Report 9217275 (Version 9)
Quarter: 2013Q4

REPORT INFORMATION
  Report Type: Report from Study
  Country: US (occurrence: US)
  Receive Date: 20130408
  Receipt Date: 20131219
  Transmission Date: 20140711
  Serious: Yes (Hospitalization)
  Sender: FDA-Public Use
  Company Number: US-CELGENEUS-163-21880-13034751

PATIENT
  Age: 72 Year
  Sex: Female
  Weight: 58.2 kg

DRUGS (37)
  1. REVLIMID [Suspect]
     Indication: PLASMA CELL MYELOMA
     Dosage: 25 MILLIGRAM
     Route: 048
     Dates: start: 20130215, end: 20130315
  2. REVLIMID [Suspect]
     Route: 048
     Dates: start: 20130315
  3. REVLIMID [Suspect]
     Route: 048
     Dates: start: 20130420
  4. REVLIMID [Suspect]
     Dosage: 25 MILLIGRAM
     Route: 048
     Dates: start: 20130510, end: 20130517
  5. ELOTUZUMAB [Suspect]
     Indication: PLASMA CELL MYELOMA
     Dosage: 563 MILLIGRAM
     Route: 041
     Dates: start: 20130215
  6. ELOTUZUMAB [Suspect]
     Route: 041
     Dates: start: 20130322
  7. DEXAMETHASONE [Suspect]
     Indication: PLASMA CELL MYELOMA
     Dosage: 8 MILLIGRAM
     Route: 041
     Dates: start: 20130215
  8. DEXAMETHASONE [Suspect]
     Dosage: 28 MILLIGRAM
     Route: 048
     Dates: start: 20130215
  9. DEXAMETHASONE [Suspect]
     Route: 041
     Dates: start: 20130324
  10. DEXAMETHASONE [Suspect]
     Route: 048
     Dates: start: 20130420
  11. DEXAMETHASONE [Suspect]
     Route: 048
     Dates: start: 20130510, end: 20130516
  12. ZOMETA [Concomitant]
     Indication: PRODUCT USED FOR UNKNOWN INDICATION
     Route: 065
     Dates: start: 20130126
  13. METOPROLOL [Concomitant]
     Indication: PRODUCT USED FOR UNKNOWN INDICATION
     Route: 065
     Dates: start: 20100101
  14. SULFAMETHOTREXAZOLE-TMP [Concomitant]
     Indication: PRODUCT USED FOR UNKNOWN INDICATION
     Route: 065
     Dates: start: 20130127
  15. FLUCONAZOLE [Concomitant]
     Indication: PRODUCT USED FOR UNKNOWN INDICATION
     Route: 065
     Dates: start: 20130127
  16. ACYCLOVIR [Concomitant]
     Indication: PRODUCT USED FOR UNKNOWN INDICATION
     Route: 065
     Dates: start: 20130127
  17. PANTOPRAZOLE [Concomitant]
     Indication: PRODUCT USED FOR UNKNOWN INDICATION
     Route: 065
     Dates: start: 20130127
  18. MIRALAX [Concomitant]
     Indication: PRODUCT USED FOR UNKNOWN INDICATION
     Route: 065
     Dates: start: 20130127
  19. OXYCONTIN [Concomitant]
     Indication: PRODUCT USED FOR UNKNOWN INDICATION
     Route: 065
     Dates: start: 20130127
  20. OXYCODONE [Concomitant]
     Indication: PRODUCT USED FOR UNKNOWN INDICATION
     Route: 065
     Dates: start: 20130127
  21. ESTRACE [Concomitant]
     Indication: PRODUCT USED FOR UNKNOWN INDICATION
     Route: 065
     Dates: start: 20130127
  22. SALINE [Concomitant]
     Indication: PRODUCT USED FOR UNKNOWN INDICATION
     Route: 045
     Dates: start: 20130127
  23. ASA [Concomitant]
     Indication: PRODUCT USED FOR UNKNOWN INDICATION
     Route: 065
     Dates: start: 20130124
  24. ASA [Concomitant]
     Route: 065
     Dates: start: 20130127
  25. LUBRICANT EYE DROP (GLYCERIN/PROPYLENE GLYCOL) [Concomitant]
     Indication: PRODUCT USED FOR UNKNOWN INDICATION
     Route: 047
     Dates: start: 20130124
  26. LIDODERM [Concomitant]
     Indication: PRODUCT USED FOR UNKNOWN INDICATION
     Route: 061
     Dates: start: 20130127
  27. SAVELLA [Concomitant]
     Indication: PRODUCT USED FOR UNKNOWN INDICATION
     Route: 065
     Dates: start: 20130324
  28. ZOFRAN [Concomitant]
     Indication: PRODUCT USED FOR UNKNOWN INDICATION
     Route: 065
     Dates: start: 20130315
  29. GLYCOLAX [Concomitant]
     Indication: PRODUCT USED FOR UNKNOWN INDICATION
     Route: 065
     Dates: start: 20130405
  30. VANCOMYCIN [Concomitant]
     Indication: PRODUCT USED FOR UNKNOWN INDICATION
     Route: 065
     Dates: start: 20130324, end: 20130324
  31. AUGMENTIN [Concomitant]
     Indication: PRODUCT USED FOR UNKNOWN INDICATION
     Route: 065
     Dates: start: 20130327, end: 20130406
  32. ZOSYN [Concomitant]
     Indication: PRODUCT USED FOR UNKNOWN INDICATION
     Route: 065
     Dates: start: 20130325, end: 20130327
  33. GLYCERIN [Concomitant]
     Indication: PRODUCT USED FOR UNKNOWN INDICATION
     Route: 047
     Dates: start: 20130124
  34. MORPHINE [Concomitant]
     Indication: ADVERSE EVENT
     Route: 065
     Dates: start: 20130420, end: 20130421
  35. ZOLEDRONIC ACID-MANNITOL + WATER [Concomitant]
     Indication: ADVERSE EVENT
     Route: 065
     Dates: start: 20130322, end: 20130326
  36. MANNITOL [Concomitant]
     Indication: PRODUCT USED FOR UNKNOWN INDICATION
     Route: 065
     Dates: start: 20130322, end: 20130326
  37. KEFLEX [Concomitant]
     Indication: PRODUCT USED FOR UNKNOWN INDICATION
     Route: 065
     Dates: start: 20130518, end: 20130520

REACTIONS (7)
  - Hyponatraemia [Recovered/Resolved]
  - Hip fracture [Not Recovered/Not Resolved]
  - Pleural effusion [Recovered/Resolved]
  - Oedema [Recovered/Resolved]
  - Urinary tract infection [Recovered/Resolved]
  - Pyrexia [Recovered/Resolved]
  - Cellulitis [Recovered/Resolved]
